FAERS Safety Report 6780759-9 (Version None)
Quarter: 2010Q2

REPORT INFORMATION
  Report Type: 
  Country: None (occurrence: None)
  Receive Date: 20100621
  Receipt Date: 20100614
  Transmission Date: 20101027
  Serious: Yes (Other)
  Sender: FDA-Public Use
  Company Number: US-JNJFOC-20100605007

PATIENT
  Sex: Female
  Weight: 83.92 kg

DRUGS (7)
  1. DURAGESIC-100 [Suspect]
     Indication: NERVE INJURY
     Route: 062
  2. HCTZ [Concomitant]
     Indication: BLOOD PRESSURE
     Route: 065
  3. ZANTAC [Concomitant]
     Indication: GASTROOESOPHAGEAL REFLUX DISEASE
     Route: 048
  4. SYNTHROID [Concomitant]
     Indication: HYPOTHYROIDISM
     Route: 048
  5. NEXIUM [Concomitant]
     Indication: GASTROOESOPHAGEAL REFLUX DISEASE
     Route: 048
  6. ATROVENT [Concomitant]
     Indication: ASTHMA
     Route: 065
  7. SYMBICORT [Concomitant]
     Indication: ASTHMA
     Route: 065

REACTIONS (4)
  - DRUG EFFECT DECREASED [None]
  - MOBILITY DECREASED [None]
  - OEDEMA PERIPHERAL [None]
  - PAIN [None]
